FAERS Safety Report 9226700 (Version 3)
Quarter: 2013Q3

REPORT INFORMATION
  Report Type: Spontaneous
  Country: US (occurrence: US)
  Receive Date: 20130412
  Receipt Date: 20130828
  Transmission Date: 20140515
  Serious: Yes (Other)
  Sender: FDA-Public Use
  Company Number: US-PFIZER INC-2013115224

PATIENT
  Age: 64 Year
  Sex: Male
  Weight: 91.61 kg

DRUGS (6)
  1. CELEBREX [Suspect]
     Indication: OSTEOARTHRITIS
     Dosage: 200 MG, 1X/DAY
     Route: 048
     Dates: start: 20090427, end: 20130409
  2. ASPIRIN [Concomitant]
     Dosage: 81 MG, UNK
  3. CELADRIN [Concomitant]
     Dosage: UNK, 3X/DAY
  4. VITAMIN C [Concomitant]
     Dosage: UNK
  5. SOLGAR NAC [Concomitant]
     Dosage: UNK
  6. IBUPROFEN [Concomitant]
     Dosage: UNK

REACTIONS (14)
  - Swollen tongue [Recovered/Resolved]
  - Pharyngeal oedema [Recovered/Resolved]
  - Lip swelling [Recovered/Resolved]
  - Feeling cold [Recovered/Resolved]
  - Hyperhidrosis [Recovered/Resolved]
  - Rash [Recovered/Resolved]
  - Urticaria [Recovered/Resolved]
  - Disorientation [Recovered/Resolved]
  - Pruritus generalised [Recovered/Resolved]
  - Oropharyngeal discomfort [Recovered/Resolved]
  - Inappropriate schedule of drug administration [Unknown]
  - Swelling face [Recovered/Resolved]
  - Incoherent [Recovered/Resolved]
  - Pruritus [Recovered/Resolved]
